FAERS Safety Report 17182336 (Version 2)
Quarter: 2019Q4

REPORT INFORMATION
  Report Type: Spontaneous
  Country: CA (occurrence: CA)
  Receive Date: 20191219
  Receipt Date: 20191223
  Transmission Date: 20200122
  Serious: No
  Sender: FDA-Public Use
  Company Number: CA-PFIZER INC-2019543444

PATIENT
  Age: 59 Year
  Sex: Female

DRUGS (3)
  1. BRENZYS [Concomitant]
     Active Substance: ETANERCEPT
     Dosage: UNK
  2. METHOTREXATE SODIUM. [Suspect]
     Active Substance: METHOTREXATE SODIUM
     Dosage: UNK
     Route: 058
  3. XOLAIR [Concomitant]
     Active Substance: OMALIZUMAB
     Indication: ASTHMA
     Dosage: UNK

REACTIONS (4)
  - Off label use [Unknown]
  - Impaired quality of life [Unknown]
  - Drug ineffective [Unknown]
  - Product use issue [Unknown]
